FAERS Safety Report 10774353 (Version 1)
Quarter: 2015Q1

REPORT INFORMATION
  Report Type: Report from Study
  Country: GB (occurrence: GB)
  Receive Date: 20150209
  Receipt Date: 20150209
  Transmission Date: 20150721
  Serious: Yes (Other)
  Sender: FDA-Public Use
  Company Number: GB-BEH-2015048517

PATIENT
  Age: 58 Year
  Sex: Male

DRUGS (1)
  1. SANDOGLOBULIN [Suspect]
     Active Substance: HUMAN IMMUNOGLOBULIN G
     Indication: MULTIFOCAL MOTOR NEUROPATHY
     Dosage: MEAN DOSE: 20.0 G/WEEK
     Route: 042

REACTIONS (1)
  - Neutropenia [Recovered/Resolved]
